FAERS Safety Report 21296566 (Version 1)
Quarter: 2022Q3

REPORT INFORMATION
  Report Type: Spontaneous
  Country: US (occurrence: US)
  Receive Date: 20220906
  Receipt Date: 20220906
  Transmission Date: 20221026
  Serious: Yes (Other)
  Sender: FDA-Public Use
  Company Number: US-CIPLA LTD.-2022US05343

PATIENT
  Age: 69 Year
  Sex: Male

DRUGS (11)
  1. AZACITIDINE [Suspect]
     Active Substance: AZACITIDINE
     Indication: Myelodysplastic syndrome
     Dosage: UNK
     Route: 065
  2. BUDESONIDE [Suspect]
     Active Substance: BUDESONIDE
     Indication: Acute graft versus host disease in intestine
     Dosage: UNK
     Route: 065
  3. TACROLIMUS [Suspect]
     Active Substance: TACROLIMUS
     Indication: Prophylaxis against graft versus host disease
     Dosage: UNK
     Route: 065
  4. TACROLIMUS [Suspect]
     Active Substance: TACROLIMUS
     Indication: Acute graft versus host disease in intestine
  5. METHOTREXATE [Suspect]
     Active Substance: METHOTREXATE
     Indication: Prophylaxis against graft versus host disease
     Dosage: UNK
     Route: 065
  6. METHOTREXATE [Suspect]
     Active Substance: METHOTREXATE
     Indication: Acute graft versus host disease in intestine
  7. METHYLPREDNISOLONE [Suspect]
     Active Substance: METHYLPREDNISOLONE
     Indication: Acute graft versus host disease in intestine
     Dosage: 160 MILLIGRAM, DAILY
     Route: 065
  8. METHYLPREDNISOLONE [Suspect]
     Active Substance: METHYLPREDNISOLONE
     Dosage: 20 MILLIGRAM, DAILY
     Route: 065
  9. RUXOLITINIB [Suspect]
     Active Substance: RUXOLITINIB
     Indication: Acute graft versus host disease in intestine
     Dosage: UNK
     Route: 065
  10. FLUDARABINE [Concomitant]
     Active Substance: FLUDARABINE PHOSPHATE
     Indication: Myelodysplastic syndrome
     Dosage: UNK, CONDITIONING
     Route: 065
  11. MELPHALAN [Concomitant]
     Active Substance: MELPHALAN
     Indication: Myelodysplastic syndrome
     Dosage: UNK, CONDITIONING
     Route: 065

REACTIONS (1)
  - Treatment failure [Unknown]
